FAERS Safety Report 8826184 (Version 1)
Quarter: 2012Q4

REPORT INFORMATION
  Report Type: 
  Country: AR (occurrence: AR)
  Receive Date: 20121005
  Receipt Date: 20121005
  Transmission Date: 20130627
  Serious: Yes (Other)
  Sender: FDA-Public Use
  Company Number: PHHY2012AR086922

PATIENT
  Age: 61 Year
  Sex: Male

DRUGS (1)
  1. EXELON [Suspect]
     Indication: DEMENTIA ALZHEIMER^S TYPE
     Dosage: 9 mg, daily
     Dates: start: 2008

REACTIONS (3)
  - Head injury [Recovering/Resolving]
  - Convulsion [Recovered/Resolved]
  - Fall [Recovering/Resolving]
